FAERS Safety Report 8192312-3 (Version None)
Quarter: 2012Q1

REPORT INFORMATION
  Report Type: 
  Country: None (occurrence: None)
  Receive Date: 20120307
  Receipt Date: 20100714
  Transmission Date: 20120608
  Serious: Yes (Hospitalization)
  Sender: FDA-Public Use
  Company Number: PHHY2010US36255

PATIENT
  Sex: Male

DRUGS (2)
  1. EXJADE [Suspect]
     Indication: IRON OVERLOAD
     Dosage: 1000 MG, QD
     Route: 048
  2. VIDAZA [Concomitant]
     Indication: MYELODYSPLASTIC SYNDROME
     Dosage: 100 MG, QD
     Dates: start: 20100202

REACTIONS (8)
  - ANAEMIA [None]
  - WHITE BLOOD CELL COUNT INCREASED [None]
  - TINNITUS [None]
  - SERUM FERRITIN INCREASED [None]
  - BLOOD UREA INCREASED [None]
  - CONSTIPATION [None]
  - PLATELET COUNT DECREASED [None]
  - RED BLOOD CELL COUNT DECREASED [None]
